FAERS Safety Report 9277821 (Version 1)
Quarter: 2013Q2

REPORT INFORMATION
  Report Type: Spontaneous
  Country: US (occurrence: None)
  Receive Date: 20130503
  Receipt Date: 20130503
  Transmission Date: 20140414
  Serious: Yes (Other)
  Sender: FDA-Public Use
  Company Number: None

PATIENT
  Age: 57 Year
  Sex: Female
  Weight: 63.5 kg

DRUGS (1)
  1. GLYCERIN [Suspect]
     Indication: ROUTINE HEALTH MAINTENANCE
     Dosage: 1 TABLESPOON
     Route: 061
     Dates: start: 20040801, end: 20130301

REACTIONS (10)
  - Drug ineffective [None]
  - Pruritus [None]
  - Dermatitis contact [None]
  - Insomnia [None]
  - Quality of life decreased [None]
  - Skin tightness [None]
  - Local swelling [None]
  - Urticaria [None]
  - Local swelling [None]
  - Erythema [None]
